FAERS Safety Report 24800043 (Version 2)
Quarter: 2025Q3

REPORT INFORMATION
  Report Type: Report from Study
  Country: BR (occurrence: BR)
  Receive Date: 20250102
  Receipt Date: 20250809
  Transmission Date: 20251020
  Serious: Yes (Other)
  Sender: ALEXION PHARMACEUTICALS
  Company Number: BR-AstraZeneca-CH-00774649A

PATIENT
  Age: 58 Year
  Sex: Female
  Weight: 78 kg

DRUGS (10)
  1. BENRALIZUMAB [Suspect]
     Active Substance: BENRALIZUMAB
     Indication: Asthma
  2. BENRALIZUMAB [Suspect]
     Active Substance: BENRALIZUMAB
  3. METFORMIN [Concomitant]
     Active Substance: METFORMIN HYDROCHLORIDE
     Route: 065
  4. LEVOTHYROXINE [Concomitant]
     Active Substance: LEVOTHYROXINE
     Route: 065
  5. GLICLAZIDE [Concomitant]
     Active Substance: GLICLAZIDE
     Route: 065
  6. HYDROCHLOROTHIAZIDE [Concomitant]
     Active Substance: HYDROCHLOROTHIAZIDE
     Route: 065
  7. LOSARTAN [Concomitant]
     Active Substance: LOSARTAN
     Indication: Blood pressure abnormal
     Route: 065
  8. BUDESONIDE [Concomitant]
     Active Substance: BUDESONIDE
  9. Alenia [Concomitant]
  10. METHOTREXATE [Concomitant]
     Active Substance: METHOTREXATE
     Indication: Autoimmune disorder
     Route: 065

REACTIONS (8)
  - Autoimmune disorder [Unknown]
  - Headache [Recovered/Resolved]
  - Feeling abnormal [Recovered/Resolved]
  - Malaise [Recovered/Resolved]
  - Blood glucose increased [Unknown]
  - Asthenia [Unknown]
  - Immune system disorder [Unknown]
  - Anxiety [Unknown]

NARRATIVE: CASE EVENT DATE: 20241121
